FAERS Safety Report 24032609 (Version 1)
Quarter: 2024Q3

REPORT INFORMATION
  Report Type: Report from Study
  Country: CO (occurrence: CO)
  Receive Date: 20240701
  Receipt Date: 20240701
  Transmission Date: 20241016
  Serious: Yes (Death, Hospitalization)
  Sender: ABBVIE
  Company Number: CO-ABBVIE-5821347

PATIENT
  Age: 50 Year
  Sex: Male

DRUGS (1)
  1. RINVOQ [Suspect]
     Active Substance: UPADACITINIB
     Indication: Rheumatoid arthritis
     Dosage: FORM STRENGTH: 15 MILLIGRAM
     Route: 048
     Dates: start: 20231117, end: 20240617

REACTIONS (3)
  - Road traffic accident [Fatal]
  - Craniocerebral injury [Fatal]
  - Injury [Fatal]

NARRATIVE: CASE EVENT DATE: 20240622
